FAERS Safety Report 6557873-6 (Version None)
Quarter: 2010Q1

REPORT INFORMATION
  Report Type: 
  Country: None (occurrence: None)
  Receive Date: 20100128
  Receipt Date: 20100128
  Transmission Date: 20100710
  Serious: No
  Sender: FDA-Public Use
  Company Number: None

PATIENT
  Age: 46 Year
  Sex: Female
  Weight: 110.6777 kg

DRUGS (1)
  1. FLOVENT HFA [Suspect]
     Indication: ASTHMA
     Dosage: 1 PUFF 2X DAY INTRA
     Dates: start: 20100126, end: 20100127

REACTIONS (8)
  - DRUG INEFFECTIVE [None]
  - FEELING ABNORMAL [None]
  - LIP DRY [None]
  - NASAL CONGESTION [None]
  - NERVOUSNESS [None]
  - PARANOIA [None]
  - THIRST [None]
  - TREMOR [None]
